FAERS Safety Report 4818752-5 (Version None)
Quarter: 2005Q4

REPORT INFORMATION
  Report Type: 
  Country: None (occurrence: None)
  Receive Date: 20051102
  Receipt Date: 20050706
  Transmission Date: 20060501
  Serious: Yes (Hospitalization)
  Sender: FDA-Public Use
  Company Number: US-MERCK-0507USA00959

PATIENT
  Age: 59 Year
  Sex: Female
  Weight: 86 kg

DRUGS (6)
  1. VIOXX [Suspect]
     Indication: ARTHRALGIA
     Route: 048
     Dates: start: 19990901
  2. VIOXX [Suspect]
     Route: 048
     Dates: start: 20021001, end: 20030601
  3. VIOXX [Suspect]
     Route: 048
     Dates: end: 20020920
  4. VIOXX [Suspect]
     Route: 048
     Dates: start: 19990901
  5. VIOXX [Suspect]
     Route: 048
     Dates: start: 20021001, end: 20030601
  6. VIOXX [Suspect]
     Route: 048
     Dates: end: 20020920

REACTIONS (13)
  - BLOOD PRESSURE INADEQUATELY CONTROLLED [None]
  - CEREBROVASCULAR ACCIDENT [None]
  - CHEST PAIN [None]
  - DEPRESSED MOOD [None]
  - DIABETES MELLITUS NON-INSULIN-DEPENDENT [None]
  - DYSPNOEA EXERTIONAL [None]
  - GENITAL PRURITUS FEMALE [None]
  - HYPERHIDROSIS [None]
  - HYPERLIPIDAEMIA [None]
  - HYPOKALAEMIA [None]
  - RETINOPATHY HYPERTENSIVE [None]
  - RHEUMATOID ARTHRITIS [None]
  - TRANSIENT ISCHAEMIC ATTACK [None]
